FAERS Safety Report 6164174-7 (Version None)
Quarter: 2009Q2

REPORT INFORMATION
  Report Type: 
  Country: None (occurrence: None)
  Receive Date: 20090422
  Receipt Date: 20090410
  Transmission Date: 20091009
  Serious: Yes (Hospitalization, Other)
  Sender: FDA-Public Use
  Company Number: US-PFIZER INC-2008155754

PATIENT
  Sex: Male
  Weight: 77.098 kg

DRUGS (24)
  1. VIAGRA [Suspect]
     Dosage: UNK
     Dates: start: 20020101
  2. LYRICA [Suspect]
     Indication: NEUROPATHY PERIPHERAL
  3. WARFARIN [Suspect]
     Dosage: UNK
  4. AVANDIA [Suspect]
  5. DIGOXIN [Concomitant]
     Dosage: UNK
  6. ALLOPURINOL [Concomitant]
     Dosage: UNK
  7. CARVEDILOL [Concomitant]
     Dosage: UNK
  8. SIMVASTATIN [Concomitant]
     Dosage: UNK
  9. ZOLPIDEM [Concomitant]
     Dosage: UNK
  10. TRAZODONE [Concomitant]
     Dosage: UNK
  11. TAMSULOSIN [Concomitant]
     Dosage: UNK
  12. FUROSEMIDE [Concomitant]
     Dosage: UNK
  13. METOPROLOL TARTRATE [Concomitant]
     Dosage: UNK
  14. ALBUTEROL [Concomitant]
     Dosage: UNK
  15. HYDROCODONE [Concomitant]
     Dosage: UNK
  16. POTASSIUM [Concomitant]
     Dosage: UNK
  17. ACETYLSALICYLIC ACID [Concomitant]
     Dosage: UNK
  18. Q10 [Concomitant]
     Dosage: UNK
  19. ALL OTHER THERAPEUTIC PRODUCTS [Concomitant]
     Dosage: UNK
  20. DUTASTERIDE [Concomitant]
     Dosage: UNK
  21. PLAVIX [Concomitant]
  22. ZAROXOLYN [Concomitant]
     Dosage: UNK
  23. ALEVE [Concomitant]
  24. MENTAX [Concomitant]

REACTIONS (7)
  - ANGIOPLASTY [None]
  - BLINDNESS [None]
  - CARDIAC FAILURE [None]
  - DELIRIUM [None]
  - LUNG NEOPLASM [None]
  - PULMONARY ARTERIAL PRESSURE INCREASED [None]
  - STENT PLACEMENT [None]
